FAERS Safety Report 21560149 (Version 2)
Quarter: 2022Q4

REPORT INFORMATION
  Report Type: Spontaneous
  Country: FR (occurrence: FR)
  Receive Date: 20221107
  Receipt Date: 20221108
  Transmission Date: 20230112
  Serious: Yes (Life-Threatening, Hospitalization, Other)
  Sender: FDA-Public Use
  Company Number: FR-CELLTRION HEALTHCARE HUNGARY KFT-2022FR014861

PATIENT
  Age: 47 Year
  Sex: Female

DRUGS (3)
  1. CIMZIA [Suspect]
     Active Substance: CERTOLIZUMAB PEGOL
     Indication: Autoinflammatory disease
     Dosage: UNK
  2. CIMZIA [Suspect]
     Active Substance: CERTOLIZUMAB PEGOL
     Indication: Product use in unapproved indication
  3. ADALIMUMAB [Suspect]
     Active Substance: ADALIMUMAB
     Indication: Autoinflammatory disease
     Dosage: UNK

REACTIONS (2)
  - Clostridium difficile colitis [Unknown]
  - Product use in unapproved indication [Unknown]
